FAERS Safety Report 16176670 (Version 2)
Quarter: 2019Q2

REPORT INFORMATION
  Report Type: Spontaneous
  Country: CA (occurrence: CA)
  Receive Date: 20190409
  Receipt Date: 20190415
  Transmission Date: 20190711
  Serious: Yes (Hospitalization)
  Sender: FDA-Public Use
  Company Number: CA-SHIRE-CA201911347

PATIENT

DRUGS (1)
  1. FOSRENOL [Suspect]
     Active Substance: LANTHANUM CARBONATE
     Indication: DIALYSIS
     Dosage: 750 MILLIGRAM, 2X/DAY:BID
     Route: 048
     Dates: start: 20181018

REACTIONS (2)
  - Foreign body in gastrointestinal tract [Unknown]
  - Confusional state [Unknown]
